FAERS Safety Report 10187883 (Version 1)
Quarter: 2014Q2

REPORT INFORMATION
  Report Type: Spontaneous
  Country: US (occurrence: US)
  Receive Date: 20140522
  Receipt Date: 20140522
  Transmission Date: 20141212
  Serious: No
  Sender: FDA-Public Use
  Company Number: US-SA-2013SA103712

PATIENT
  Age: 73 Year
  Sex: Female

DRUGS (3)
  1. LANTUS SOLOSTAR [Suspect]
     Indication: TYPE 2 DIABETES MELLITUS
     Dosage: DOSE:5 UNIT(S)
     Route: 051
     Dates: start: 20131007
  2. SOLOSTAR [Concomitant]
     Dates: start: 20131007
  3. ORAL ANTIDIABETICS [Concomitant]

REACTIONS (3)
  - Anxiety [Unknown]
  - Injury associated with device [Unknown]
  - Blood glucose abnormal [Unknown]
